FAERS Safety Report 16908876 (Version 1)
Quarter: 2019Q4

REPORT INFORMATION
  Report Type: Spontaneous
  Country: US (occurrence: US)
  Receive Date: 20191011
  Receipt Date: 20191011
  Transmission Date: 20200122
  Serious: No
  Sender: FDA-Public Use
  Company Number: US-PFIZER INC-2019436046

PATIENT
  Age: 86 Year
  Sex: Female
  Weight: 57.15 kg

DRUGS (2)
  1. LYRICA [Suspect]
     Active Substance: PREGABALIN
     Indication: PAIN
     Dosage: 150 MG, 2X/DAY
     Route: 048
  2. ALENDRONATE [Suspect]
     Active Substance: ALENDRONATE SODIUM
     Indication: PAIN IN EXTREMITY
     Dosage: 70 MG, WEEKLY
     Route: 048
     Dates: start: 20190528, end: 20190805

REACTIONS (4)
  - Memory impairment [Unknown]
  - Joint swelling [Unknown]
  - Pain in extremity [Recovering/Resolving]
  - Confusional state [Unknown]

NARRATIVE: CASE EVENT DATE: 20190923
